FAERS Safety Report 16445119 (Version 5)
Quarter: 2019Q4

REPORT INFORMATION
  Report Type: Spontaneous
  Country: ES (occurrence: ES)
  Receive Date: 20190618
  Receipt Date: 20191231
  Transmission Date: 20200122
  Serious: Yes (Death, Other)
  Sender: FDA-Public Use
  Company Number: ES-MYLANLABS-2019M1056490

PATIENT
  Age: 52 Year
  Sex: Male

DRUGS (8)
  1. OMEPRAZOLE. [Concomitant]
     Active Substance: OMEPRAZOLE
     Indication: PROPHYLAXIS
     Dosage: UNK
     Route: 065
     Dates: start: 20141127
  2. BOSUTINIB [Suspect]
     Active Substance: BOSUTINIB
     Indication: CHRONIC MYELOID LEUKAEMIA
     Dosage: 400 MG, QD
     Route: 048
     Dates: start: 20141203, end: 20151111
  3. BOSUTINIB [Suspect]
     Active Substance: BOSUTINIB
     Dosage: 400 MG, QD
     Route: 065
     Dates: start: 20141203, end: 20151111
  4. ICLUSIG [Suspect]
     Active Substance: PONATINIB
     Dosage: 30 MG, QD
     Route: 065
     Dates: start: 2018
  5. IMATINIB. [Suspect]
     Active Substance: IMATINIB MESYLATE
     Indication: CHRONIC MYELOID LEUKAEMIA
     Dosage: 400 MG, 1X/DAY
     Route: 048
     Dates: start: 20180517
  6. ICLUSIG [Suspect]
     Active Substance: PONATINIB
     Indication: CHRONIC MYELOID LEUKAEMIA
     Dosage: 30 MG, QD (DAILY)
     Route: 048
     Dates: start: 2018, end: 20180517
  7. NILOTINIB [Suspect]
     Active Substance: NILOTINIB
     Dosage: 800 MILLIGRAM,QD(400 MG,BID (2X/DAY))
     Route: 048
     Dates: start: 20170731, end: 20180529
  8. NILOTINIB [Suspect]
     Active Substance: NILOTINIB
     Indication: CHRONIC MYELOID LEUKAEMIA
     Dosage: 400 MG, 2X/DAY
     Route: 048
     Dates: start: 20170731, end: 20180329

REACTIONS (2)
  - Myocardial infarction [Fatal]
  - Hypotension [Unknown]

NARRATIVE: CASE EVENT DATE: 20180605
